FAERS Safety Report 4287465-3 (Version None)
Quarter: 2004Q1

REPORT INFORMATION
  Report Type: 
  Country: None (occurrence: None)
  Receive Date: 20040209
  Receipt Date: 20030702
  Transmission Date: 20041129
  Serious: No
  Sender: FDA-Public Use
  Company Number: US-GLAXOSMITHKLINE-A0415096A

PATIENT
  Age: 35 Year
  Sex: Female

DRUGS (5)
  1. PAXIL CR [Suspect]
     Indication: PANIC REACTION
     Route: 048
     Dates: start: 20030601
  2. ZOCOR [Concomitant]
  3. ZETIA [Concomitant]
  4. XANAX [Concomitant]
  5. ATIVAN [Concomitant]

REACTIONS (6)
  - ANOREXIA [None]
  - DIARRHOEA [None]
  - DISSOCIATION [None]
  - DISTURBANCE IN ATTENTION [None]
  - FEELING ABNORMAL [None]
  - HEADACHE [None]
